FAERS Safety Report 5643641-6 (Version None)
Quarter: 2008Q1

REPORT INFORMATION
  Report Type: 
  Country: None (occurrence: None)
  Receive Date: 20080228
  Receipt Date: 20080216
  Transmission Date: 20080703
  Serious: Yes (Other)
  Sender: FDA-Public Use
  Company Number: US-PFIZER INC-2007105481

PATIENT
  Sex: Female
  Weight: 113.4 kg

DRUGS (15)
  1. LYRICA [Suspect]
     Indication: FIBROMYALGIA
     Dates: start: 20070801, end: 20070901
  2. LYRICA [Suspect]
     Indication: COMPLEX REGIONAL PAIN SYNDROME
  3. LYRICA [Suspect]
     Indication: NEUROPATHY PERIPHERAL
  4. CHANTIX [Concomitant]
  5. EFFEXOR XR [Concomitant]
  6. TOPAMAX [Concomitant]
  7. DETROL LA [Concomitant]
  8. PROVIGIL [Concomitant]
  9. BACLOFEN [Concomitant]
  10. ALLEGRA [Concomitant]
  11. TOPROL-XL [Concomitant]
  12. ALL OTHER THERAPEUTIC PRODUCTS [Concomitant]
  13. FLONASE [Concomitant]
  14. ASTELIN [Concomitant]
  15. LIDODERM [Concomitant]

REACTIONS (7)
  - BLOOD PRESSURE INCREASED [None]
  - HEADACHE [None]
  - MYALGIA [None]
  - OEDEMA PERIPHERAL [None]
  - PAIN [None]
  - SWELLING FACE [None]
  - WEIGHT INCREASED [None]
